FAERS Safety Report 8392050-8 (Version None)
Quarter: 2012Q2

REPORT INFORMATION
  Report Type: 
  Country: None (occurrence: None)
  Receive Date: 20120529
  Receipt Date: 20120524
  Transmission Date: 20120825
  Serious: Yes (Other)
  Sender: FDA-Public Use
  Company Number: US-ABBOTT-12P-163-0939530-00

PATIENT
  Sex: Male
  Weight: 106.69 kg

DRUGS (6)
  1. ANDROGEL [Suspect]
     Dosage: 4 PUMPS PER DAY
     Dates: start: 20080101, end: 20120401
  2. ULORIC [Concomitant]
     Indication: GOUT
  3. ANDROGEL [Suspect]
     Indication: BLOOD TESTOSTERONE DECREASED
     Dosage: 6 PUMPS PER DAY
     Dates: start: 20070101, end: 20080101
  4. UNKNOWN SUPPLEMENTS [Concomitant]
     Indication: SUPPLEMENTATION THERAPY
  5. ANDROGEL [Suspect]
     Indication: BLOOD TESTOSTERONE DECREASED
     Dosage: 2 PUMPS PER DAY
     Dates: start: 20120401
  6. DICLOFENAC [Concomitant]
     Indication: ARTHRITIS

REACTIONS (6)
  - COLON CANCER [None]
  - HAEMOGLOBIN INCREASED [None]
  - ASTHENIA [None]
  - COGNITIVE DISORDER [None]
  - ERECTILE DYSFUNCTION [None]
  - MALAISE [None]
